FAERS Safety Report 7656994-4 (Version None)
Quarter: 2011Q3

REPORT INFORMATION
  Report Type: 
  Country: None (occurrence: None)
  Receive Date: 20110804
  Receipt Date: 20110721
  Transmission Date: 20111222
  Serious: Yes (Death, Hospitalization, Other)
  Sender: FDA-Public Use
  Company Number: HU-TYCO HEALTHCARE/MALLINCKRODT-T201101386

PATIENT
  Age: 39 Year
  Sex: Male

DRUGS (21)
  1. EXALGO [Suspect]
     Indication: CANCER PAIN
     Dosage: 32 MG, UNK
     Dates: start: 20100401, end: 20100601
  2. MORPHINE SULFATE [Suspect]
     Indication: BREAKTHROUGH PAIN
     Dosage: UNK
     Dates: start: 20100101
  3. GEMCITABINE [Suspect]
     Indication: CHEMOTHERAPY
     Dosage: 3 SERIES OF 8 TREATMENTS
     Dates: start: 20100401, end: 20100701
  4. FENTANYL-100 [Suspect]
     Dosage: 250 UG/HR, UNK
     Dates: start: 20100101, end: 20101001
  5. MORPHINE [Suspect]
     Indication: PAIN
     Dosage: 20 MG, SINGLE
     Route: 058
     Dates: start: 20100101, end: 20100101
  6. MS CONTIN [Suspect]
     Indication: CANCER PAIN
     Dosage: 3 X130 MG
     Dates: start: 20101001
  7. MS CONTIN [Suspect]
     Dosage: 3 X 190 MG
     Route: 048
     Dates: end: 20100101
  8. AMITRIPTYLINE HCL [Suspect]
     Indication: PAIN
     Dosage: 2 X 1
  9. NSAID'S [Suspect]
     Indication: PAIN
     Dosage: PRN PAIN
  10. PROTON PUMP INHIBITORS [Concomitant]
     Dosage: UNK
  11. FENTANYL-100 [Suspect]
     Dosage: 125 UG/HR, UNK
     Dates: start: 20100601, end: 20100101
  12. FENTANYL-100 [Suspect]
     Dosage: UNK
     Dates: start: 20100101, end: 20100101
  13. FENTANYL-100 [Suspect]
     Dosage: 100 UG/HR, UNK
     Dates: start: 20100101, end: 20100101
  14. FEM PROTOCOL [Suspect]
     Dosage: 2 SERIES
     Dates: start: 20100101
  15. FENTANYL-100 [Suspect]
     Dosage: 50 UG/HR, UNK
  16. MS CONTIN [Suspect]
     Dosage: 2 X 90 MG
     Route: 048
     Dates: start: 20100101
  17. FENTANYL-100 [Suspect]
     Dosage: 150 UG/HR, UNK
     Dates: start: 20100101
  18. FENTANYL-100 [Suspect]
     Dosage: 200 UG/HR, UNK
     Dates: start: 20100101, end: 20100101
  19. CISPLATIN [Suspect]
     Indication: CHEMOTHERAPY
     Dosage: 3 SERIES OF 8 TREATMENTS
     Dates: start: 20100401, end: 20100701
  20. FENTANYL-100 [Suspect]
     Dosage: 75 UG/HR, UNK
     Dates: end: 20100401
  21. NSAID'S [Suspect]
     Dosage: REGULARLY ADMINISTERED

REACTIONS (16)
  - NEOPLASM PROGRESSION [None]
  - HYPOTENSION [None]
  - CHOLANGITIS [None]
  - HALLUCINATION [None]
  - BILE DUCT OBSTRUCTION [None]
  - DYSPHAGIA [None]
  - DEATH [None]
  - ANAEMIA [None]
  - DRUG EFFECT DECREASED [None]
  - MALAISE [None]
  - MUSCLE SPASMS [None]
  - SOMNOLENCE [None]
  - GENERAL PHYSICAL HEALTH DETERIORATION [None]
  - WEIGHT DECREASED [None]
  - URINARY RETENTION [None]
  - CONFUSIONAL STATE [None]
